FAERS Safety Report 8774827 (Version 1)
Quarter: 2012Q4

REPORT INFORMATION
  Report Type: 
  Country: US (occurrence: US)
  Receive Date: 20120910
  Receipt Date: 20120910
  Transmission Date: 20130627
  Serious: Yes (Other)
  Sender: FDA-Public Use
  Company Number: US-SANOFI-AVENTIS-2012SA062793

PATIENT
  Sex: Female

DRUGS (2)
  1. LANTUS [Suspect]
     Indication: TYPE II DIABETES MELLITUS
     Dosage: Dose:24 unit(s)
     Route: 058
  2. SOLOSTAR [Suspect]
     Indication: TYPE II DIABETES MELLITUS

REACTIONS (6)
  - Cataract [Unknown]
  - Glaucoma [Unknown]
  - Retinopathy [Unknown]
  - Visual impairment [Unknown]
  - Device malfunction [None]
  - Incorrect product storage [None]
